FAERS Safety Report 7240895-X (Version None)
Quarter: 2011Q1

REPORT INFORMATION
  Report Type: 
  Country: None (occurrence: None)
  Receive Date: 20110124
  Receipt Date: 20110112
  Transmission Date: 20110831
  Serious: Yes (Disabling)
  Sender: FDA-Public Use
  Company Number: PHHY2010MY70627

PATIENT
  Sex: Female

DRUGS (1)
  1. ACLASTA [Suspect]
     Dates: start: 20090110

REACTIONS (2)
  - BEDRIDDEN [None]
  - SPINAL FRACTURE [None]
